FAERS Safety Report 9532415 (Version 3)
Quarter: 2013Q4

REPORT INFORMATION
  Report Type: Spontaneous
  Country: US (occurrence: None)
  Receive Date: 20130916
  Receipt Date: 20131028
  Transmission Date: 20140711
  Serious: Yes (Other)
  Sender: FDA-Public Use
  Company Number: ACO_38420_2013

PATIENT
  Age: 51 Year
  Sex: Female
  Weight: 47.6 kg

DRUGS (5)
  1. AMPYRA [Suspect]
     Indication: GAIT DISTURBANCE
     Route: 048
     Dates: start: 2010
  2. KLONOPIN (CLONAZEPAM) (TABLETS) [Concomitant]
  3. ZANAFLEX (TIZANIDINE HYDROCHLORIDE) [Concomitant]
  4. OXYBUTYNIN (OXYBUTYNIN HYDROCHLORIDE) [Concomitant]
  5. TYSABRI (NATALIZUMAB) [Concomitant]

REACTIONS (4)
  - Upper limb fracture [None]
  - Fall [None]
  - Balance disorder [None]
  - Drug ineffective [None]
